FAERS Safety Report 7589009-7 (Version None)
Quarter: 2011Q3

REPORT INFORMATION
  Report Type: 
  Country: None (occurrence: None)
  Receive Date: 20110705
  Receipt Date: 20110621
  Transmission Date: 20111222
  Serious: Yes (Hospitalization)
  Sender: FDA-Public Use
  Company Number: JP-JNJFOC-20090106436

PATIENT
  Sex: Male
  Weight: 61 kg

DRUGS (7)
  1. REMICADE [Suspect]
     Route: 042
     Dates: start: 20080504
  2. PENTASA [Concomitant]
     Indication: CROHN'S DISEASE
     Route: 048
  3. LAC-B [Concomitant]
     Indication: CROHN'S DISEASE
     Route: 048
  4. IMURAN [Suspect]
     Indication: CROHN'S DISEASE
     Route: 048
  5. ELENTAL [Concomitant]
     Indication: CROHN'S DISEASE
     Route: 048
  6. REMICADE [Suspect]
     Indication: CROHN'S DISEASE
     Dosage: 4 INFUSIONS ON UNKNOWN DATES
     Route: 042
  7. REMICADE [Suspect]
     Dosage: 6TH INFUSION
     Route: 042
     Dates: start: 20081202

REACTIONS (1)
  - PNEUMONIA CRYPTOCOCCAL [None]
